FAERS Safety Report 5152366-5 (Version None)
Quarter: 2006Q4

REPORT INFORMATION
  Report Type: 
  Country: None (occurrence: None)
  Receive Date: 20061116
  Receipt Date: 20060628
  Transmission Date: 20070319
  Serious: Yes (Hospitalization)
  Sender: FDA-Public Use
  Company Number: US-ELI_LILLY_AND_COMPANY-US200607000377

PATIENT
  Age: 10 Year
  Sex: Male
  Weight: 30.839 kg

DRUGS (4)
  1. STRATTERA [Suspect]
     Indication: ATTENTION DEFICIT/HYPERACTIVITY DISORDER
     Dosage: UNK, UNK
     Dates: start: 20051005, end: 20060501
  2. AXID [Concomitant]
     Indication: ABDOMINAL PAIN
     Dates: start: 20051220
  3. PREVACID [Concomitant]
     Indication: ABDOMINAL PAIN
     Dates: start: 20051220
  4. INFLUENZA VIRUS VACCINE [Concomitant]
     Dosage: UNK, OTHER
     Dates: start: 20051220, end: 20051220

REACTIONS (10)
  - ABDOMINAL PAIN [None]
  - HEPATITIS B SURFACE ANTIGEN POSITIVE [None]
  - INFECTIOUS MONONUCLEOSIS [None]
  - LETHARGY [None]
  - NAUSEA [None]
  - PALLOR [None]
  - PHARYNGITIS [None]
  - PHARYNGITIS STREPTOCOCCAL [None]
  - SPLENOMEGALY [None]
  - VOMITING [None]
